FAERS Safety Report 6861650-6 (Version None)
Quarter: 2010Q3

REPORT INFORMATION
  Report Type: 
  Country: None (occurrence: None)
  Receive Date: 20100721
  Receipt Date: 20100715
  Transmission Date: 20110219
  Serious: No
  Sender: FDA-Public Use
  Company Number: US-BIOGENIDEC-2010BI020588

PATIENT
  Age: 52 Year
  Sex: Female

DRUGS (1)
  1. TYSABRI [Suspect]
     Indication: MULTIPLE SCLEROSIS
     Route: 042
     Dates: start: 20081007

REACTIONS (8)
  - ASTHENIA [None]
  - DEPRESSION [None]
  - DIZZINESS [None]
  - DYSGRAPHIA [None]
  - FALL [None]
  - FATIGUE [None]
  - NEUROPATHY PERIPHERAL [None]
  - UPPER LIMB FRACTURE [None]
